FAERS Safety Report 5859616-8 (Version None)
Quarter: 2008Q3

REPORT INFORMATION
  Report Type: 
  Country: None (occurrence: None)
  Receive Date: 20080825
  Receipt Date: 20080814
  Transmission Date: 20090109
  Serious: Yes (Death, Hospitalization)
  Sender: FDA-Public Use
  Company Number: 2008-02998

PATIENT
  Age: 79 Year
  Sex: Male

DRUGS (11)
  1. VELCADE [Suspect]
     Indication: MULTIPLE MYELOMA
     Dosage: 1.3 MG/M2, UNK, INTRAVENOUS
     Route: 042
     Dates: start: 20080721, end: 20080728
  2. TANESPIMYCIN(TANESPIMYCIN) [Suspect]
     Indication: MULTIPLE MYELOMA
     Dosage: 340 MG/M2, UNK, INTRAVENOUS
     Route: 042
     Dates: start: 20080721, end: 20080728
  3. FLOMAX [Concomitant]
  4. ASPIRIN [Concomitant]
  5. FAMOTIDINE [Concomitant]
  6. PROCHLORPERAZINE MALEATE [Concomitant]
  7. LORAZEPAM [Concomitant]
  8. ONDANSETRON HCL [Concomitant]
  9. METOCLOPRAMIDE [Concomitant]
  10. IMODIUM [Concomitant]
  11. MORNIFLUMATE (MORNIFLUMATE) [Concomitant]

REACTIONS (19)
  - BACTERIA URINE IDENTIFIED [None]
  - BLOOD CREATININE INCREASED [None]
  - BLOOD PRESSURE DECREASED [None]
  - BLOOD UREA INCREASED [None]
  - CEREBRAL HAEMORRHAGE [None]
  - DIARRHOEA [None]
  - GENERAL PHYSICAL HEALTH DETERIORATION [None]
  - HAEMATOCRIT DECREASED [None]
  - HAEMATURIA [None]
  - INTERNATIONAL NORMALISED RATIO INCREASED [None]
  - MOUTH HAEMORRHAGE [None]
  - NAUSEA [None]
  - PLATELET COUNT DECREASED [None]
  - PUPIL FIXED [None]
  - RED BLOOD CELL COUNT DECREASED [None]
  - TROPONIN I INCREASED [None]
  - UNRESPONSIVE TO STIMULI [None]
  - VOMITING [None]
  - WHITE BLOOD CELLS URINE POSITIVE [None]
